FAERS Safety Report 14307606 (Version 1)
Quarter: 2017Q4

REPORT INFORMATION
  Report Type: Spontaneous
  Country: DE (occurrence: DE)
  Receive Date: 20171220
  Receipt Date: 20171220
  Transmission Date: 20180321
  Serious: Yes (Death, Hospitalization)
  Sender: FDA-Public Use
  Company Number: DE-TEVA-2017-DE-832918

PATIENT
  Age: 69 Year
  Sex: Female

DRUGS (10)
  1. FOLSAN [Concomitant]
     Active Substance: FOLIC ACID
     Route: 065
     Dates: start: 200809
  2. PREDNISOLONE. [Concomitant]
     Active Substance: PREDNISOLONE
  3. LANSOPRAZOLE. [Concomitant]
     Active Substance: LANSOPRAZOLE
  4. DEKRISTOL [Concomitant]
     Active Substance: CHOLECALCIFEROL
  5. METHOTREXATE. [Suspect]
     Active Substance: METHOTREXATE
     Indication: RHEUMATOID ARTHRITIS
     Dosage: DAILY DOSE: 7.5 MG MILLGRAM(S) EVERY WEEKS
     Route: 048
     Dates: start: 200809
  6. MABTHERA [Suspect]
     Active Substance: RITUXIMAB
     Indication: RHEUMATOID ARTHRITIS
     Dosage: LAST ADMINISTRATION PRIOR TO THE EVENT: 30-AUG-2010 DOSE: 4000 MG
     Route: 042
  7. RASILEZ 150 MG FILMTABLETTEN [Concomitant]
  8. LEVOTHYROXINE. [Concomitant]
     Active Substance: LEVOTHYROXINE
  9. RASILEZ [Concomitant]
     Active Substance: ALISKIREN
     Dosage: DAILY DOSE: 300 MG MILLGRAM(S) EVERY DAYS
     Route: 065
  10. PLAVIX [Concomitant]
     Active Substance: CLOPIDOGREL BISULFATE
     Dates: start: 201004

REACTIONS (4)
  - Stent placement [Recovered/Resolved]
  - Rectocele [Recovered/Resolved]
  - Anal prolapse [Recovered/Resolved]
  - Death [Fatal]

NARRATIVE: CASE EVENT DATE: 201004
